FAERS Safety Report 7978796-1 (Version None)
Quarter: 2011Q4

REPORT INFORMATION
  Report Type: 
  Country: None (occurrence: None)
  Receive Date: 20111214
  Receipt Date: 20111208
  Transmission Date: 20120403
  Serious: No
  Sender: FDA-Public Use
  Company Number: US-BAYER-2011-119433

PATIENT
  Age: 80 Year
  Sex: Female
  Weight: 125 kg

DRUGS (7)
  1. ALEVE (CAPLET) [Suspect]
     Indication: ARTHRITIS
     Dosage: UNK
     Dates: start: 20110101
  2. VITAMIN B COMPLEX CAP [Concomitant]
  3. VITAMIN D [Concomitant]
  4. MULTI-VITAMIN [Concomitant]
  5. RESVERATROL [Concomitant]
  6. LEVOXYL [Concomitant]
  7. JOINT EFFORT FROM PROCAPS [Concomitant]

REACTIONS (1)
  - DRUG INEFFECTIVE [None]
